FAERS Safety Report 9901598 (Version 2)
Quarter: 2014Q1

REPORT INFORMATION
  Report Type: Spontaneous
  Country: US (occurrence: US)
  Receive Date: 20140217
  Receipt Date: 20140217
  Transmission Date: 20141002
  Serious: No
  Sender: FDA-Public Use
  Company Number: US-GILEAD-2011-0043642

PATIENT
  Age: 20 Year
  Sex: Female

DRUGS (3)
  1. LETAIRIS [Suspect]
     Indication: PULMONARY ARTERIAL HYPERTENSION
     Dates: start: 20101208
  2. ADCIRCA [Concomitant]
  3. TYVASO [Concomitant]

REACTIONS (4)
  - Cough [Unknown]
  - Respiratory tract irritation [Unknown]
  - Catheterisation cardiac [Unknown]
  - Dyspnoea [Unknown]
